FAERS Safety Report 24143219 (Version 2)
Quarter: 2024Q4

REPORT INFORMATION
  Report Type: Spontaneous
  Country: GB (occurrence: GB)
  Receive Date: 20240726
  Receipt Date: 20241025
  Transmission Date: 20250115
  Serious: Yes (Death, Hospitalization)
  Sender: MYLAN
  Company Number: GB-MYLANLABS-2024M1068811

PATIENT
  Sex: Male

DRUGS (1)
  1. CLOZARIL [Suspect]
     Active Substance: CLOZAPINE
     Indication: Schizophrenia
     Dosage: UNK
     Route: 048
     Dates: start: 20051111

REACTIONS (2)
  - Sudden death [Fatal]
  - Hospitalisation [Unknown]

NARRATIVE: CASE EVENT DATE: 20241001
